FAERS Safety Report 5289526-9 (Version None)
Quarter: 2007Q2

REPORT INFORMATION
  Report Type: 
  Country: None (occurrence: None)
  Receive Date: 20070402
  Receipt Date: 20070327
  Transmission Date: 20071010
  Serious: Yes (Death)
  Sender: FDA-Public Use
  Company Number: 163-20785-06100405

PATIENT
  Age: 12 Year
  Sex: Female

DRUGS (10)
  1. THALOMID [Suspect]
     Indication: OSTEOLYSIS
     Dosage: 150-700 MG, DAILY, GT
     Dates: start: 20051123, end: 20061004
  2. INTERFERON (INTERFERON) [Concomitant]
  3. ZOMETA [Concomitant]
  4. NEURONTIN [Concomitant]
  5. ALBUTEROL [Concomitant]
  6. ZOLOFT [Concomitant]
  7. REMERON [Concomitant]
  8. PULMOZYME [Concomitant]
  9. PREVACID [Concomitant]
  10. ZOFRAN [Concomitant]

REACTIONS (5)
  - PNEUMONIA ASPIRATION [None]
  - PNEUMOPERITONEUM [None]
  - PNEUMOTHORAX [None]
  - RESPIRATORY FAILURE [None]
  - VOMITING [None]
